FAERS Safety Report 7954353-8 (Version None)
Quarter: 2011Q4

REPORT INFORMATION
  Report Type: 
  Country: None (occurrence: None)
  Receive Date: 20111202
  Receipt Date: 20111122
  Transmission Date: 20120403
  Serious: Yes (Hospitalization, Other)
  Sender: FDA-Public Use
  Company Number: CA-JNJFOC-20111110900

PATIENT
  Sex: Female
  Weight: 71.5 kg

DRUGS (10)
  1. ASPIRIN [Concomitant]
     Dates: start: 20111001
  2. REMICADE [Suspect]
     Indication: CROHN'S DISEASE
     Dosage: EVERY 6-8 WEEKS
     Route: 042
     Dates: start: 20040304
  3. SYNTHROID [Concomitant]
  4. PANTOPRAZOLE SODIUM [Concomitant]
     Dates: start: 20111001
  5. PLAVIX [Concomitant]
  6. NITROGLYCERIN [Concomitant]
     Dates: start: 20111001
  7. ESCITALOPRAM [Concomitant]
  8. DOMPERIDONE [Concomitant]
  9. PERINDOPRIL ERBUMINE [Concomitant]
  10. ATORVASTATIN [Concomitant]
     Dates: start: 20111001

REACTIONS (2)
  - TONGUE ULCERATION [None]
  - MYOCARDIAL INFARCTION [None]
